FAERS Safety Report 7347343-X (Version None)
Quarter: 2011Q1

REPORT INFORMATION
  Report Type: 
  Country: None (occurrence: None)
  Receive Date: 20110311
  Receipt Date: 20110302
  Transmission Date: 20110831
  Serious: Yes (Hospitalization)
  Sender: FDA-Public Use
  Company Number: US-ELI_LILLY_AND_COMPANY-US201101000093

PATIENT
  Age: 65 Year
  Sex: Female
  Weight: 63.492 kg

DRUGS (5)
  1. CYMBALTA [Suspect]
     Dosage: 90 MG, UNK
     Dates: start: 20100101
  2. CYMBALTA [Suspect]
     Indication: DEPRESSION
     Dosage: 120 MG, DAILY (1/D)
  3. LISINOPRIL [Concomitant]
     Indication: HYPERTENSION
     Dosage: 10 MG, UNK
  4. CYMBALTA [Suspect]
     Dosage: 60 MG, UNK
  5. CYMBALTA [Suspect]
     Dosage: 120 MG, DAILY (1/D)

REACTIONS (3)
  - DRUG WITHDRAWAL SYNDROME [None]
  - SEROTONIN SYNDROME [None]
  - MALAISE [None]
